FAERS Safety Report 17496217 (Version 8)
Quarter: 2021Q4

REPORT INFORMATION
  Report Type: Spontaneous
  Country: DE (occurrence: DE)
  Receive Date: 20200304
  Receipt Date: 20211222
  Transmission Date: 20220303
  Serious: Yes (Other)
  Sender: FDA-Public Use
  Company Number: PHHY2019DE172840

PATIENT
  Sex: Male

DRUGS (7)
  1. VALSARTAN [Suspect]
     Active Substance: VALSARTAN
     Indication: Hypertension
     Dosage: 1 DOSAGE FORM, QD
     Route: 065
     Dates: start: 20140908, end: 20180718
  2. VALSARTAN [Suspect]
     Active Substance: VALSARTAN
     Dosage: 1 DOSAGE FORM, QD
     Route: 065
     Dates: start: 20150414
  3. LEVOTHYROXINE SODIUM [Concomitant]
     Active Substance: LEVOTHYROXINE SODIUM
     Indication: Hypothyroidism
     Dosage: 1 DOSAGE FORM, QD (MORNING)
     Route: 065
     Dates: start: 2003
  4. VALSARTAN [Concomitant]
     Active Substance: VALSARTAN
     Indication: Hypertension
     Dosage: UNK
     Route: 065
     Dates: start: 2014
  5. DYMISTA [Concomitant]
     Active Substance: AZELASTINE HYDROCHLORIDE\FLUTICASONE PROPIONATE
     Indication: Nasal septum deviation
     Dosage: UNK
     Route: 065
  6. CANDESARTAN [Concomitant]
     Active Substance: CANDESARTAN
     Indication: Product used for unknown indication
     Dosage: 1 DF, QD (1X 8 MG MORNING)
     Route: 065
  7. CHOLECALCIFEROL [Concomitant]
     Active Substance: CHOLECALCIFEROL
     Indication: Product used for unknown indication
     Dosage: 1 DF, QD (1 X 1000 IU MORNING)
     Route: 065

REACTIONS (33)
  - Bradycardia [Unknown]
  - Chronic gastritis [Not Recovered/Not Resolved]
  - Gastrointestinal disorder [Not Recovered/Not Resolved]
  - Mental disorder [Unknown]
  - Sleep disorder [Unknown]
  - Anxiety disorder [Not Recovered/Not Resolved]
  - Tremor [Unknown]
  - Dyspepsia [Not Recovered/Not Resolved]
  - Gastrooesophageal reflux disease [Not Recovered/Not Resolved]
  - Infection [Unknown]
  - Iron deficiency [Unknown]
  - Depression [Unknown]
  - Fear [Unknown]
  - Duodenitis [Not Recovered/Not Resolved]
  - Weight decreased [Unknown]
  - Injury [Unknown]
  - Stress [Unknown]
  - Anxiety [Unknown]
  - Emotional distress [Unknown]
  - Product contamination [Unknown]
  - Quality of life decreased [Unknown]
  - Abdominal pain upper [Not Recovered/Not Resolved]
  - Nausea [Unknown]
  - Fatigue [Unknown]
  - Abdominal pain [Not Recovered/Not Resolved]
  - Headache [Unknown]
  - Dizziness [Unknown]
  - Hyperhidrosis [Unknown]
  - Hyperplasia [Not Recovered/Not Resolved]
  - Lymphocytic oesophagitis [Not Recovered/Not Resolved]
  - Leukocytosis [Not Recovered/Not Resolved]
  - Leukoplakia [Not Recovered/Not Resolved]
  - Acanthosis [Not Recovered/Not Resolved]

NARRATIVE: CASE EVENT DATE: 20160101
